FAERS Safety Report 6977539-8 (Version None)
Quarter: 2010Q3

REPORT INFORMATION
  Report Type: 
  Country: None (occurrence: None)
  Receive Date: 20100911
  Receipt Date: 20100901
  Transmission Date: 20110219
  Serious: Yes (Disabling)
  Sender: FDA-Public Use
  Company Number: PHHY2010CA26630

PATIENT
  Sex: Female

DRUGS (7)
  1. ZOLEDRONIC [Suspect]
     Indication: OSTEOPOROSIS
     Dosage: 5 MG YEARLY
     Route: 042
     Dates: start: 20100420
  2. ATIVAN [Concomitant]
     Dosage: 1 MG, BID
  3. CARVEDILOL [Concomitant]
     Dosage: 3.125 TWICE DAILY
  4. WARFARIN [Concomitant]
     Dosage: UNK
  5. SIMVASTATIN [Concomitant]
  6. FLUOXETINE [Concomitant]
     Dosage: 30 MG, QD
  7. HYDROXYZINE [Concomitant]

REACTIONS (11)
  - ARTHRALGIA [None]
  - BONE PAIN [None]
  - CHILLS [None]
  - CRYING [None]
  - GAIT DISTURBANCE [None]
  - GENERAL PHYSICAL HEALTH DETERIORATION [None]
  - HAND DEFORMITY [None]
  - MUSCLE SPASMS [None]
  - PHYSICAL DISABILITY [None]
  - PYREXIA [None]
  - WALKING AID USER [None]
